FAERS Safety Report 7883999-0 (Version None)
Quarter: 2011Q4

REPORT INFORMATION
  Report Type: 
  Country: None (occurrence: None)
  Receive Date: 20111102
  Receipt Date: 20111025
  Transmission Date: 20120403
  Serious: Yes (Hospitalization)
  Sender: FDA-Public Use
  Company Number: PHHY2011FR95425

PATIENT
  Sex: Female

DRUGS (1)
  1. VOLTAREN [Suspect]
     Indication: BACK PAIN
     Dosage: 2 DF, DAILY FOR 8 DAYS

REACTIONS (15)
  - SKIN LESION [None]
  - PRURITUS [None]
  - JAUNDICE [None]
  - FATIGUE [None]
  - EOSINOPHIL COUNT INCREASED [None]
  - RASH MACULO-PAPULAR [None]
  - TRANSAMINASES INCREASED [None]
  - DRUG RASH WITH EOSINOPHILIA AND SYSTEMIC SYMPTOMS [None]
  - ABDOMINAL PAIN UPPER [None]
  - PYREXIA [None]
  - BLOOD ALKALINE PHOSPHATASE INCREASED [None]
  - WHITE BLOOD CELL COUNT INCREASED [None]
  - HEPATITIS ACUTE [None]
  - BLOOD BILIRUBIN INCREASED [None]
  - GAMMA-GLUTAMYLTRANSFERASE INCREASED [None]
